FAERS Safety Report 7750489-5 (Version None)
Quarter: 2011Q3

REPORT INFORMATION
  Report Type: 
  Country: None (occurrence: None)
  Receive Date: 20110914
  Receipt Date: 20110908
  Transmission Date: 20111222
  Serious: Yes (Other)
  Sender: FDA-Public Use
  Company Number: GB-PFIZER INC-2011211782

PATIENT
  Age: 19 Year
  Sex: Female

DRUGS (2)
  1. CITALOPRAM [Concomitant]
     Indication: OBSESSIVE-COMPULSIVE DISORDER
     Dosage: 20 MG, UNK
     Route: 048
     Dates: start: 20110521, end: 20110501
  2. TRAZODONE HCL [Suspect]
     Indication: DEPRESSION
     Dosage: 75 MG, UNK
     Route: 050
     Dates: start: 20110729, end: 20110802

REACTIONS (6)
  - PHOTOSENSITIVITY REACTION [None]
  - ERYTHEMA [None]
  - SEDATION [None]
  - PYREXIA [None]
  - HEADACHE [None]
  - RASH GENERALISED [None]
